FAERS Safety Report 20350227 (Version 1)
Quarter: 2022Q1

REPORT INFORMATION
  Report Type: Spontaneous
  Country: US (occurrence: None)
  Receive Date: 20220117
  Receipt Date: 20220117
  Transmission Date: 20220423
  Serious: Yes (Hospitalization)
  Sender: FDA-Public Use
  Company Number: None

PATIENT
  Age: 38 Year
  Sex: Female
  Weight: 80.1 kg

DRUGS (1)
  1. LEVOFLOXACIN [Suspect]
     Active Substance: LEVOFLOXACIN
     Indication: Kidney infection
     Dosage: OTHER QUANTITY : 7 CAPSULE(S);?FREQUENCY : DAILY;?
     Route: 048
     Dates: start: 20211122, end: 20211124

REACTIONS (7)
  - Rash [None]
  - Peripheral swelling [None]
  - Myalgia [None]
  - Arthralgia [None]
  - Loss of personal independence in daily activities [None]
  - Joint stiffness [None]
  - Mobility decreased [None]

NARRATIVE: CASE EVENT DATE: 20211126
